FAERS Safety Report 10654632 (Version 1)
Quarter: 2014Q4

REPORT INFORMATION
  Report Type: Spontaneous
  Country: DE (occurrence: DE)
  Receive Date: 20141216
  Receipt Date: 20141216
  Transmission Date: 20150529
  Serious: Yes (Other)
  Sender: FDA-Public Use
  Company Number: DE-ENDO PHARMACEUTICALS INC.-AVEE20140356

PATIENT
  Age: 20 Year
  Sex: Female

DRUGS (1)
  1. AVEED [Suspect]
     Active Substance: TESTOSTERONE UNDECANOATE
     Indication: TRANSGENDER HORMONAL THERAPY
     Route: 030

REACTIONS (3)
  - Cough [Unknown]
  - Product use issue [Unknown]
  - Dyspnoea [Unknown]
